FAERS Safety Report 24467341 (Version 1)
Quarter: 2024Q4

REPORT INFORMATION
  Report Type: Report from Study
  Country: US (occurrence: US)
  Receive Date: 20241018
  Receipt Date: 20241018
  Transmission Date: 20250114
  Serious: No
  Sender: ROCHE
  Company Number: US-ROCHE-3571066

PATIENT
  Age: 47 Year
  Sex: Female
  Weight: 120.6 kg

DRUGS (9)
  1. XOLAIR [Suspect]
     Active Substance: OMALIZUMAB
     Indication: Food allergy
     Dosage: VIAL  LAST INJECTION DATE: 21/APR/2024?ANTICIPATED DATE OF TREATMENT: 24/MAY/2024
     Route: 058
  2. XOLAIR [Suspect]
     Active Substance: OMALIZUMAB
     Indication: Food allergy
  3. XOLAIR [Suspect]
     Active Substance: OMALIZUMAB
     Indication: Urticaria
  4. XANAX [Concomitant]
     Active Substance: ALPRAZOLAM
  5. ELAVIL [AMITRIPTYLINE] [Concomitant]
  6. PEPCID [Concomitant]
     Active Substance: FAMOTIDINE
  7. CLARITIN [Concomitant]
     Active Substance: LORATADINE
  8. SINGULAIR [Concomitant]
     Active Substance: MONTELUKAST SODIUM
  9. PRILOSEC [Concomitant]
     Active Substance: OMEPRAZOLE MAGNESIUM

REACTIONS (1)
  - Urticaria [Unknown]
